FAERS Safety Report 4370514-1 (Version None)
Quarter: 2004Q2

REPORT INFORMATION
  Report Type: 
  Country: None (occurrence: None)
  Receive Date: 20040601
  Receipt Date: 20031117
  Transmission Date: 20050107
  Serious: Yes (Hospitalization)
  Sender: FDA-Public Use
  Company Number: US052507

PATIENT
  Age: 65 Year
  Sex: Female

DRUGS (6)
  1. ENBREL [Suspect]
     Indication: RHEUMATOID ARTHRITIS
     Dosage: 25 MG, SC
     Route: 058
     Dates: start: 20010101, end: 20030901
  2. METHOTREXATE [Concomitant]
  3. PROPAFENONE HYDROCHLORIDE [Concomitant]
  4. DEXPANTHEOL [Concomitant]
  5. PREDNISONE [Concomitant]
  6. PANTOPRAZOLE [Concomitant]

REACTIONS (2)
  - FACIAL PARESIS [None]
  - VIRAL INFECTION [None]
